FAERS Safety Report 20575090 (Version 2)
Quarter: 2022Q2

REPORT INFORMATION
  Report Type: Spontaneous
  Country: VN (occurrence: VN)
  Receive Date: 20220310
  Receipt Date: 20220408
  Transmission Date: 20220720
  Serious: Yes (Life-Threatening, Hospitalization)
  Sender: FDA-Public Use
  Company Number: VN-SA-2022SA078712

PATIENT
  Age: 68 Year
  Sex: Male

DRUGS (2)
  1. ELOXATIN [Suspect]
     Active Substance: OXALIPLATIN
     Indication: Colon cancer
     Dosage: 200 MG, MIXED IN 500ML GLUCOSE 5%
     Route: 041
     Dates: start: 20220303, end: 20220303
  2. DEXTROSE [Concomitant]
     Active Substance: DEXTROSE
     Dosage: 500 ML
     Route: 041

REACTIONS (4)
  - Chills [Recovered/Resolved]
  - Hypoaesthesia [Recovered/Resolved]
  - Dyspnoea [Recovered/Resolved]
  - Pyrexia [Recovered/Resolved]

NARRATIVE: CASE EVENT DATE: 20220303
